FAERS Safety Report 13276140 (Version 1)
Quarter: 2017Q1

REPORT INFORMATION
  Report Type: Spontaneous
  Country: JP (occurrence: JP)
  Receive Date: 20170228
  Receipt Date: 20170228
  Transmission Date: 20170428
  Serious: Yes (Hospitalization)
  Sender: FDA-Public Use
  Company Number: JP-CIPLA LTD.-2017JP02252

PATIENT

DRUGS (2)
  1. TS-1 [Suspect]
     Active Substance: GIMERACIL\OTERACIL\TEGAFUR
     Indication: BILIARY NEOPLASM
     Dosage: 80 MG, FOR 14 DAYS FOLLOWED BY 7 DAYS OF REST, REPEATED EVERY 3 WEEKS, 32 COURSES
     Route: 048
  2. GEMCITABINE [Suspect]
     Active Substance: GEMCITABINE\GEMCITABINE HYDROCHLORIDE
     Indication: BILIARY NEOPLASM
     Dosage: 1000 MG/M2, AT DAY 1 AND 8, REPEATED EVERY 3 WEEKS, 32 COURSES
     Route: 042

REACTIONS (5)
  - Diarrhoea [Unknown]
  - Bone marrow failure [Unknown]
  - Vomiting [Unknown]
  - Pancreatic fistula [Unknown]
  - Alopecia [Unknown]
